FAERS Safety Report 5171206-1 (Version None)
Quarter: 2006Q4

REPORT INFORMATION
  Report Type: 
  Country: None (occurrence: None)
  Receive Date: 20061213
  Receipt Date: 20061204
  Transmission Date: 20070319
  Serious: Yes (Hospitalization)
  Sender: FDA-Public Use
  Company Number: FR-JNJFOC-20061102947

PATIENT
  Age: 53 Year
  Sex: Male

DRUGS (2)
  1. DURAGESIC-100 [Suspect]
     Indication: SCIATICA
     Route: 062
  2. RIVOTRIL [Suspect]
     Indication: SCIATICA
     Route: 048

REACTIONS (1)
  - PURPURA [None]
